FAERS Safety Report 17953190 (Version 2)
Quarter: 2020Q3

REPORT INFORMATION
  Report Type: Report from Study
  Country: IT (occurrence: IT)
  Receive Date: 20200627
  Receipt Date: 20200702
  Transmission Date: 20201103
  Serious: Yes (Hospitalization)
  Sender: FDA-Public Use
  Company Number: NVSC2020IT178751

PATIENT
  Age: 14 Year
  Sex: Male

DRUGS (1)
  1. OMNITROPE [Suspect]
     Active Substance: SOMATROPIN
     Indication: PRODUCT USED FOR UNKNOWN INDICATION
     Dosage: 1.4 MG
     Route: 065
     Dates: start: 20170131

REACTIONS (3)
  - Drug administered in wrong device [Unknown]
  - Dehydration [Unknown]
  - Device occlusion [Unknown]

NARRATIVE: CASE EVENT DATE: 20200621
